FAERS Safety Report 6157566-3 (Version None)
Quarter: 2009Q2

REPORT INFORMATION
  Report Type: 
  Country: None (occurrence: None)
  Receive Date: 20090414
  Receipt Date: 20090405
  Transmission Date: 20091009
  Serious: Yes (Hospitalization, Other)
  Sender: FDA-Public Use
  Company Number: CHPA2009US08946

PATIENT
  Sex: Female

DRUGS (1)
  1. BENEFIBER UNKNOWN (NCH) (UNKNOWN) UNKNOWN [Suspect]
     Indication: BOWEL MOVEMENT IRREGULARITY
     Dosage: 10 TSP, ONCE/SINGLE, ORAL
     Route: 048

REACTIONS (4)
  - DRUG INEFFECTIVE [None]
  - HERNIA [None]
  - INTESTINAL OBSTRUCTION [None]
  - OVERDOSE [None]
